FAERS Safety Report 19659588 (Version 1)
Quarter: 2021Q3

REPORT INFORMATION
  Report Type: Spontaneous
  Country: CN (occurrence: CN)
  Receive Date: 20210804
  Receipt Date: 20210804
  Transmission Date: 20211014
  Serious: Yes (Hospitalization)
  Sender: FDA-Public Use
  Company Number: CN-BAXTER-2021BAX023426

PATIENT
  Age: 49 Year
  Sex: Female
  Weight: 60 kg

DRUGS (6)
  1. PIRARUBICIN HYDROCHLORIDE [Suspect]
     Active Substance: PIRARUBICIN HYDROCHLORIDE
     Dosage: PIRARUBICIN HYDROCHLORIDE FOR INJECTION (80 MG, QD) +  5% GLUCOSE INJECTION (250 ML, QD)
     Route: 041
     Dates: start: 20210313, end: 20210313
  2. 0.9% SODIUM CHLORIDE INJECTION [Suspect]
     Active Substance: SODIUM CHLORIDE
     Indication: MEDICATION DILUTION
     Dosage: CYCLOPHOSPHAMIDE POWDER FOR INJECTION (1G, QD) + 0.9% SODIUM CHLORIDE INJECTION (500ML, QD)
     Route: 041
     Dates: start: 20210313, end: 20210313
  3. 5% GLUCOSE  INJECTION [Suspect]
     Active Substance: DEXTROSE
     Indication: MEDICATION DILUTION
     Dosage: PIRARUBICIN HYDROCHLORIDE FOR INJECTION (80 MG, QD) +  5% GLUCOSE INJECTION (250 ML, QD)
     Route: 041
     Dates: start: 20210313, end: 20210313
  4. PIRARUBICIN HYDROCHLORIDE [Suspect]
     Active Substance: PIRARUBICIN HYDROCHLORIDE
     Indication: BREAST CANCER
     Dosage: PRIOR DRUG
     Route: 065
  5. ENDOXAN [Suspect]
     Active Substance: CYCLOPHOSPHAMIDE
     Dosage: CYCLOPHOSPHAMIDE POWDER FOR INJECTION (1G, QD) + 0.9% SODIUM CHLORIDE INJECTION (500ML, QD)
     Route: 041
     Dates: start: 20210313, end: 20210313
  6. ENDOXAN [Suspect]
     Active Substance: CYCLOPHOSPHAMIDE
     Indication: BREAST CANCER
     Dosage: PRIOR DRUG
     Route: 065

REACTIONS (4)
  - Nausea [Recovered/Resolved]
  - Vomiting [Recovered/Resolved]
  - Nausea [Recovered/Resolved]
  - Vomiting [Recovered/Resolved]

NARRATIVE: CASE EVENT DATE: 20210313
